FAERS Safety Report 20786745 (Version 5)
Quarter: 2022Q3

REPORT INFORMATION
  Report Type: Spontaneous
  Country: US (occurrence: US)
  Receive Date: 20220505
  Receipt Date: 20220707
  Transmission Date: 20221027
  Serious: Yes (Other)
  Sender: FDA-Public Use
  Company Number: US-GLAXOSMITHKLINE-US2022071647

PATIENT

DRUGS (2)
  1. ZEJULA [Suspect]
     Active Substance: NIRAPARIB
     Indication: Ovarian cancer
     Dosage: 300 MG, QD
     Dates: start: 20220409, end: 20220419
  2. ZEJULA [Suspect]
     Active Substance: NIRAPARIB
     Dosage: 200 MG, QD
     Dates: start: 20220512, end: 20220630

REACTIONS (8)
  - Malignant neoplasm progression [Unknown]
  - Functional gastrointestinal disorder [Recovered/Resolved]
  - Attention deficit hyperactivity disorder [Recovered/Resolved]
  - Mania [Recovered/Resolved]
  - Insomnia [Recovering/Resolving]
  - Dry eye [Unknown]
  - Confusional state [Unknown]
  - Photophobia [Unknown]

NARRATIVE: CASE EVENT DATE: 20220401
